FAERS Safety Report 15704912 (Version 1)
Quarter: 2018Q4

REPORT INFORMATION
  Report Type: Spontaneous
  Country: CA (occurrence: CA)
  Receive Date: 20181210
  Receipt Date: 20181210
  Transmission Date: 20190205
  Serious: Yes (Other)
  Sender: FDA-Public Use
  Company Number: CA-TEVA-2018-CA-986151

PATIENT
  Age: 47 Year
  Sex: Male

DRUGS (13)
  1. ACT BUPROPION XL [Concomitant]
     Active Substance: BUPROPION
     Dosage: 300 MILLIGRAM DAILY;
  2. VENLAFAXINE HYDROCHLORIDE. [Concomitant]
     Active Substance: VENLAFAXINE HYDROCHLORIDE
     Dosage: 75 MILLIGRAM DAILY;
  3. PMS-HYDROMORPHONE [Concomitant]
     Active Substance: HYDROMORPHONE HYDROCHLORIDE
     Indication: PAIN
  4. CELECOXIB. [Concomitant]
     Active Substance: CELECOXIB
     Dosage: 200 MILLIGRAM DAILY;
  5. COLESTID [Concomitant]
     Active Substance: COLESTIPOL HYDROCHLORIDE
     Dosage: 4 GRAM DAILY;
  6. MINOXIDIL. [Concomitant]
     Active Substance: MINOXIDIL
  7. SILDENAFIL CITRATE. [Suspect]
     Active Substance: SILDENAFIL CITRATE
     Indication: ERECTILE DYSFUNCTION
     Route: 065
  8. PMS-LOPERAMIDE [Concomitant]
     Indication: DIARRHOEA
  9. PMS-ZOPICLONE [Concomitant]
     Active Substance: ZOPICLONE
     Indication: INSOMNIA
  10. VITAMIN B12 [Concomitant]
     Active Substance: CYANOCOBALAMIN
     Dosage: 250 MILLIGRAM DAILY;
     Route: 048
  11. AZATHIOPRINE. [Concomitant]
     Active Substance: AZATHIOPRINE
     Route: 065
  12. CLONAZEPAM. [Concomitant]
     Active Substance: CLONAZEPAM
  13. RISPERIDONE. [Concomitant]
     Active Substance: RISPERIDONE
     Dosage: .5 MILLIGRAM DAILY;

REACTIONS (1)
  - Vein rupture [Unknown]
